FAERS Safety Report 12009310 (Version 1)
Quarter: 2016Q1

REPORT INFORMATION
  Report Type: Spontaneous
  Country: US (occurrence: US)
  Receive Date: 20160205
  Receipt Date: 20160205
  Transmission Date: 20160526
  Serious: No
  Sender: FDA-Public Use
  Company Number: US-PAR PHARMACEUTICAL, INC-2015SCPR010391

PATIENT

DRUGS (1)
  1. BUPROPION HYDROCHLORIDE XL [Suspect]
     Active Substance: BUPROPION HYDROCHLORIDE
     Indication: PERSISTENT DEPRESSIVE DISORDER
     Dosage: UNK UNK, UNKNOWN
     Route: 065

REACTIONS (3)
  - Depression [Recovering/Resolving]
  - Acne cystic [Recovering/Resolving]
  - Product substitution issue [Unknown]

NARRATIVE: CASE EVENT DATE: 2014
